FAERS Safety Report 18595834 (Version 1)
Quarter: 2020Q4

REPORT INFORMATION
  Report Type: Spontaneous
  Country: CA (occurrence: CA)
  Receive Date: 20201209
  Receipt Date: 20201209
  Transmission Date: 20210114
  Serious: Yes (Other)
  Sender: FDA-Public Use
  Company Number: CA-PFIZER INC-2020484896

PATIENT
  Age: 56 Year
  Sex: Female

DRUGS (3)
  1. METHOTREXATE SODIUM. [Suspect]
     Active Substance: METHOTREXATE SODIUM
     Indication: GRANULOMATOSIS WITH POLYANGIITIS
     Dosage: 15 MG, WEEKLY
     Route: 065
  2. RITUXIMAB. [Concomitant]
     Active Substance: RITUXIMAB
     Indication: GRANULOMATOSIS WITH POLYANGIITIS
     Dosage: 500 MG, EVERY 6 MONTHS
     Route: 042
  3. PREDNISONE. [Concomitant]
     Active Substance: PREDNISONE
     Dosage: 5 MG (Q)
     Route: 065

REACTIONS (6)
  - Granulomatosis with polyangiitis [Recovered/Resolved]
  - Disease recurrence [Recovered/Resolved]
  - Drug effective for unapproved indication [Unknown]
  - Stenosis [Unknown]
  - Dyspnoea [Unknown]
  - Off label use [Unknown]
